FAERS Safety Report 23176479 (Version 1)
Quarter: 2023Q4

REPORT INFORMATION
  Report Type: Spontaneous
  Country: US (occurrence: None)
  Receive Date: 20231110
  Receipt Date: 20231110
  Transmission Date: 20240109
  Serious: Yes (Life-Threatening, Hospitalization)
  Sender: FDA-Public Use
  Company Number: None

PATIENT
  Age: 19 Year
  Sex: Female

DRUGS (4)
  1. MIFEPRISTONE [Suspect]
     Active Substance: MIFEPRISTONE
     Indication: Unwanted pregnancy
     Route: 048
  2. MISOPROSTOL [Suspect]
     Active Substance: MISOPROSTOL
     Indication: Unwanted pregnancy
     Dosage: OTHER FREQUENCY : Q4 HOURS;?
     Route: 002
     Dates: start: 20231109
  3. MIFEPRISTONE [Concomitant]
     Active Substance: MIFEPRISTONE
     Dates: start: 20231108, end: 20231108
  4. MISOPROSTOL [Concomitant]
     Active Substance: MISOPROSTOL
     Dates: start: 20231109, end: 20231110

REACTIONS (6)
  - Vaginal haemorrhage [None]
  - Haemorrhage [None]
  - Hypotension [None]
  - Transfusion [None]
  - Exposure during pregnancy [None]
  - Maternal drugs affecting foetus [None]

NARRATIVE: CASE EVENT DATE: 20231110
